FAERS Safety Report 9683538 (Version 4)
Quarter: 2017Q3

REPORT INFORMATION
  Report Type: Report from Study
  Country: JP (occurrence: JP)
  Receive Date: 20131112
  Receipt Date: 20170821
  Transmission Date: 20171128
  Serious: Yes (Death, Other)
  Sender: FDA-Public Use
  Company Number: JP-GILEAD-2013-0087460

PATIENT
  Age: 57 Year
  Sex: Female
  Weight: 39 kg

DRUGS (12)
  1. AMBRISENTAN [Suspect]
     Active Substance: AMBRISENTAN
     Indication: PULMONARY HYPERTENSION
  2. REVATIO [Concomitant]
     Active Substance: SILDENAFIL CITRATE
     Indication: PULMONARY HYPERTENSION
     Dosage: UNK
     Route: 048
     Dates: end: 20160517
  3. BERAPROST NA [Concomitant]
     Active Substance: BERAPROST SODIUM
     Dosage: UNK
  4. ALDACTONE A [Concomitant]
     Active Substance: SPIRONOLACTONE
     Dosage: UNK
     Dates: start: 20110209, end: 20160517
  5. AMBRISENTAN [Suspect]
     Active Substance: AMBRISENTAN
     Indication: PULMONARY HYPERTENSION
     Dosage: 5 MG, QD
     Route: 048
     Dates: start: 20101129, end: 20160517
  6. FUROSEMIDE. [Concomitant]
     Active Substance: FUROSEMIDE
     Dosage: UNK
     Route: 048
     Dates: start: 20110209, end: 20160517
  7. BERAPROST NA [Concomitant]
     Active Substance: BERAPROST SODIUM
     Route: 048
  8. WARFARIN [Concomitant]
     Active Substance: WARFARIN
     Dosage: UNK
     Route: 048
     Dates: end: 20160517
  9. ALDACTONE A [Concomitant]
     Active Substance: SPIRONOLACTONE
     Dosage: 25 MG, QD
     Route: 048
     Dates: start: 20110209, end: 20160517
  10. BERASUS LA [Concomitant]
     Indication: PULMONARY HYPERTENSION
     Dosage: UNK
     Dates: end: 20160517
  11. VASOLAN                            /00014302/ [Concomitant]
     Active Substance: VERAPAMIL HYDROCHLORIDE
  12. TRACLEER [Concomitant]
     Active Substance: BOSENTAN
     Route: 048

REACTIONS (7)
  - Fluid retention [Recovered/Resolved]
  - Renal impairment [Not Recovered/Not Resolved]
  - Takayasu^s arteritis [Fatal]
  - Cardiac failure [Recovered/Resolved]
  - Disease progression [Fatal]
  - Anaemia [Recovered/Resolved]
  - Anaemia [Not Recovered/Not Resolved]

NARRATIVE: CASE EVENT DATE: 20110209
